FAERS Safety Report 7532496-0 (Version None)
Quarter: 2011Q2

REPORT INFORMATION
  Report Type: 
  Country: None (occurrence: None)
  Receive Date: 20110607
  Receipt Date: 20110607
  Transmission Date: 20111010
  Serious: No
  Sender: FDA-Public Use
  Company Number: None

PATIENT
  Age: 14 Year
  Sex: Female
  Weight: 53.978 kg

DRUGS (1)
  1. HUMIRA [Suspect]

REACTIONS (2)
  - ALOPECIA [None]
  - AMENORRHOEA [None]
